FAERS Safety Report 5297530-X (Version None)
Quarter: 2007Q2

REPORT INFORMATION
  Report Type: 
  Country: None (occurrence: None)
  Receive Date: 20070416
  Receipt Date: 20070412
  Transmission Date: 20071010
  Serious: Yes (Death, Hospitalization)
  Sender: FDA-Public Use
  Company Number: BE-JNJFOC-20070402433

PATIENT
  Age: 60 Year
  Sex: Male

DRUGS (6)
  1. TAVANIC [Suspect]
     Indication: DEVICE RELATED INFECTION
     Route: 042
  2. TAVANIC [Suspect]
     Route: 048
  3. FLAGYL [Suspect]
     Indication: DRUG USE FOR UNKNOWN INDICATION
     Route: 048
  4. FLAGYL [Suspect]
     Route: 042
  5. VANCOMYCIN [Concomitant]
     Indication: DEVICE RELATED INFECTION
     Route: 042
  6. VANCOMYCIN [Concomitant]
     Route: 048

REACTIONS (4)
  - DEATH [None]
  - GASTROINTESTINAL HAEMORRHAGE [None]
  - PSEUDOMEMBRANOUS COLITIS [None]
  - RENAL FAILURE [None]
